FAERS Safety Report 9701162 (Version 1)
Quarter: 2013Q4

REPORT INFORMATION
  Report Type: Spontaneous
  Country: US (occurrence: US)
  Receive Date: 20131121
  Receipt Date: 20131121
  Transmission Date: 20140711
  Serious: No
  Sender: FDA-Public Use
  Company Number: US-GILEAD-2008-0015905

PATIENT
  Sex: Female

DRUGS (10)
  1. LETAIRIS [Suspect]
     Route: 048
  2. FLOLAN [Concomitant]
  3. COUMADIN [Concomitant]
     Dosage: 5 AND 7.5
     Route: 048
  4. LORAZEPAM [Concomitant]
     Route: 048
  5. POTASSIUM [Concomitant]
     Route: 048
  6. CITALOPRAM [Concomitant]
     Route: 048
  7. FOSAMAX [Concomitant]
     Route: 048
  8. CALCIUM [Concomitant]
     Route: 048
  9. ROZEREM [Concomitant]
     Route: 048
  10. LEVOTHYROXINE [Concomitant]
     Route: 048

REACTIONS (1)
  - Arthralgia [None]
